FAERS Safety Report 19055911 (Version 1)
Quarter: 2021Q1

REPORT INFORMATION
  Report Type: Spontaneous
  Country: GB (occurrence: GB)
  Receive Date: 20210325
  Receipt Date: 20210325
  Transmission Date: 20210420
  Serious: Yes (Other)
  Sender: FDA-Public Use
  Company Number: GB-ORGANON-O2103GBR002571

PATIENT
  Age: 25 Year
  Sex: Female
  Weight: 64 kg

DRUGS (2)
  1. LEVETIRACETAM ACCORD [Concomitant]
     Active Substance: LEVETIRACETAM
     Dosage: UNK
  2. MOMETASONE FUROATE. [Suspect]
     Active Substance: MOMETASONE FUROATE
     Indication: MITE ALLERGY
     Dosage: 2 SPRAYS EACH NOSTRIL TWICE A DAY
     Route: 045
     Dates: start: 20210320

REACTIONS (1)
  - Headache [Not Recovered/Not Resolved]

NARRATIVE: CASE EVENT DATE: 20210321
